FAERS Safety Report 7536623-0 (Version None)
Quarter: 2011Q2

REPORT INFORMATION
  Report Type: 
  Country: None (occurrence: None)
  Receive Date: 20110608
  Receipt Date: 20110608
  Transmission Date: 20111010
  Serious: Yes (Other)
  Sender: FDA-Public Use
  Company Number: None

PATIENT
  Age: 29 Year
  Sex: Female
  Weight: 86.637 kg

DRUGS (1)
  1. LAMOTRIGINE [Suspect]
     Indication: AFFECTIVE DISORDER
     Dates: start: 20110512, end: 20110603

REACTIONS (9)
  - RASH ERYTHEMATOUS [None]
  - RASH GENERALISED [None]
  - OROPHARYNGEAL BLISTERING [None]
  - LIP BLISTER [None]
  - PAIN IN EXTREMITY [None]
  - BURNING SENSATION [None]
  - NO THERAPEUTIC RESPONSE [None]
  - URTICARIA [None]
  - LIP SWELLING [None]
